FAERS Safety Report 19362720 (Version 1)
Quarter: 2021Q2

REPORT INFORMATION
  Report Type: Report from Study
  Country: FR (occurrence: FR)
  Receive Date: 20210602
  Receipt Date: 20210602
  Transmission Date: 20210717
  Serious: Yes (Life-Threatening)
  Sender: FDA-Public Use
  Company Number: FR-CELGENEUS-FRA-20210400619

PATIENT
  Age: 56 Year
  Sex: Female
  Weight: 80 kg

DRUGS (12)
  1. CARFILZOMIB [Suspect]
     Active Substance: CARFILZOMIB
     Dosage: 74 MILLIGRAM
     Route: 065
     Dates: start: 20201229, end: 20210103
  2. POMALIDOMIDE [Suspect]
     Active Substance: POMALIDOMIDE
     Indication: PLASMA CELL MYELOMA
     Dosage: 4 MILLIGRAM
     Route: 048
     Dates: start: 20201228
  3. ISATUXIMAB [Suspect]
     Active Substance: ISATUXIMAB
     Dosage: 810 MILLIGRAM
     Route: 065
     Dates: start: 20210118
  4. CARFILZOMIB [Suspect]
     Active Substance: CARFILZOMIB
     Dosage: 150 MILLIGRAM
     Route: 065
     Dates: start: 2021
  5. POMALIDOMIDE [Suspect]
     Active Substance: POMALIDOMIDE
     Dosage: 4 MILLIGRAM
     Route: 048
     Dates: start: 20210103, end: 20210103
  6. CARFILZOMIB [Suspect]
     Active Substance: CARFILZOMIB
     Indication: PLASMA CELL MYELOMA
     Route: 065
     Dates: start: 20201228
  7. POMALIDOMIDE [Suspect]
     Active Substance: POMALIDOMIDE
     Dosage: 4 MILLIGRAM
     Route: 048
     Dates: start: 2021
  8. ISATUXIMAB [Suspect]
     Active Substance: ISATUXIMAB
     Dosage: 810 MILLIGRAM
     Route: 065
     Dates: start: 20210104
  9. ISATUXIMAB [Suspect]
     Active Substance: ISATUXIMAB
     Indication: PLASMA CELL MYELOMA
     Dosage: 810 MILLIGRAM
     Route: 065
     Dates: start: 20201228, end: 20201228
  10. DEXAMETHASONE. [Suspect]
     Active Substance: DEXAMETHASONE
     Dosage: 40 MILLIGRAM
     Route: 065
     Dates: start: 20210103
  11. DEXAMETHASONE. [Suspect]
     Active Substance: DEXAMETHASONE
     Dosage: 40 MILLIGRAM
     Route: 065
     Dates: start: 20210118
  12. DEXAMETHASONE. [Suspect]
     Active Substance: DEXAMETHASONE
     Indication: PLASMA CELL MYELOMA
     Dosage: 40 MILLIGRAM
     Route: 065
     Dates: start: 20201228, end: 20201228

REACTIONS (1)
  - Neutropenia [Recovered/Resolved]

NARRATIVE: CASE EVENT DATE: 20210116
